FAERS Safety Report 7636233 (Version 2)
Quarter: 2020Q3

REPORT INFORMATION
  Report Type: Spontaneous
  Country: JP (occurrence: JP)
  Receive Date: 20090813
  Receipt Date: 20110628
  Transmission Date: 20201105
  Serious: Yes (Death)
  Sender: FDA-Public Use
  Company Number: JP-ABBOTT-09P-087-0590526-00

PATIENT
  Age: 22 Year
  Sex: Female
  Weight: 58 kg

DRUGS (29)
  1. ACETAMINOPHEN. [Suspect]
     Active Substance: ACETAMINOPHEN
     Indication: ANALGESIC THERAPY
     Route: 048
     Dates: start: 20090107
  2. ALPINIA KATSUMADAI FRUIT EXTRACT [Suspect]
     Active Substance: ALPINIA KATSUMADAI FRUIT EXTRACT
     Indication: DRUG ERUPTION
     Route: 048
     Dates: start: 20090122, end: 20090123
  3. CELESTAMINE [Suspect]
     Active Substance: BETAMETHASONE\DEXCHLORPHENIRAMINE MALEATE
     Indication: DRUG ERUPTION
     Dosage: BETAMETHASONE 0.25 MG/CHLORPHENIRAMINE 2 MG
     Route: 048
     Dates: start: 20090122, end: 20090123
  4. MEQUITAZINE [Suspect]
     Active Substance: MEQUITAZINE
     Indication: RHINITIS ALLERGIC
     Route: 048
     Dates: start: 20090107, end: 20090119
  5. IRSOGLADINE [Suspect]
     Active Substance: IRSOGLADINE
     Indication: PROPHYLAXIS AGAINST GASTROINTESTINAL ULCER
     Route: 048
     Dates: start: 20090108, end: 20090122
  6. PREDONINE [Suspect]
     Active Substance: PREDNISOLONE
     Indication: DRUG ERUPTION
     Route: 048
     Dates: start: 20090122, end: 20090123
  7. PLATE [Concomitant]
     Dosage: TOTAL 85 UNITS
     Route: 042
     Dates: start: 20090225, end: 20090306
  8. UNSPECIFIED INGREDIENT [Suspect]
     Active Substance: UNSPECIFIED INGREDIENT
     Route: 048
     Dates: start: 20090117, end: 20090119
  9. OLOPATADINE HYDROCHLORIDE. [Suspect]
     Active Substance: OLOPATADINE HYDROCHLORIDE
     Indication: DRUG ERUPTION
     Route: 048
     Dates: start: 20090123, end: 20090125
  10. MAP (RED CELL CONCENTRATES MANNITOL ADENINE PHOSPHATE) [Concomitant]
     Dosage: TOTAL 16 UNITS
     Route: 042
     Dates: start: 20090225, end: 20090306
  11. PLATE [Concomitant]
     Dosage: TOTAL 85 UNITS
     Route: 042
     Dates: start: 20090307, end: 20090310
  12. CLARITHROMYCIN. [Suspect]
     Active Substance: CLARITHROMYCIN
     Indication: OTITIS MEDIA ACUTE
     Route: 048
     Dates: start: 20090117, end: 20090119
  13. FLOMOX [CEFCAPENE PIVOXIL HYDROCHLORIDE] [Suspect]
     Active Substance: CEFCAPENE PIVOXIL HYDROCHLORIDE
     Indication: OTITIS MEDIA ACUTE
     Route: 048
     Dates: start: 20090107, end: 20090108
  14. SOLU?MEDROL [Concomitant]
     Active Substance: METHYLPREDNISOLONE SODIUM SUCCINATE
     Route: 042
     Dates: start: 20090125, end: 20090127
  15. PLASMA, FRESH FROZEN [Concomitant]
     Active Substance: HUMAN PLASMA
     Dosage: TOTAL 9 UNITS
     Route: 042
     Dates: start: 20090214, end: 20090224
  16. PLASMA, FRESH FROZEN [Concomitant]
     Active Substance: HUMAN PLASMA
     Dosage: TOTAL 64 UNITS
     Route: 042
     Dates: start: 20090307, end: 20090310
  17. UNSPECIFIED INGREDIENT [Suspect]
     Active Substance: UNSPECIFIED INGREDIENT
     Indication: OTITIS MEDIA ACUTE
     Route: 048
     Dates: start: 20090107, end: 20090110
  18. BETAMETHASONE. [Suspect]
     Active Substance: BETAMETHASONE
     Route: 048
     Dates: start: 20090119, end: 20090122
  19. MAP (RED CELL CONCENTRATES MANNITOL ADENINE PHOSPHATE) [Concomitant]
     Dosage: TOTAL 4 UNITS
     Route: 042
     Dates: start: 20090214, end: 20090224
  20. CEFDITOREN PIVOXIL. [Suspect]
     Active Substance: CEFDITOREN PIVOXIL
     Indication: OTITIS MEDIA ACUTE
     Route: 048
     Dates: start: 20090108, end: 20090117
  21. BETAMETHASONE. [Suspect]
     Active Substance: BETAMETHASONE
     Indication: OTITIS MEDIA ACUTE
     Route: 048
     Dates: start: 20090108, end: 20090117
  22. REBAMIPIDE [Suspect]
     Active Substance: REBAMIPIDE
     Indication: DRUG ERUPTION
     Route: 048
     Dates: start: 20090123, end: 20090125
  23. PLASMA, FRESH FROZEN [Concomitant]
     Active Substance: HUMAN PLASMA
     Dosage: TOTAL 120 UNITS
     Route: 042
     Dates: start: 20090130, end: 20090201
  24. BETAMETHASONE. [Suspect]
     Active Substance: BETAMETHASONE
     Route: 048
     Dates: start: 20090123, end: 20090125
  25. METHYLCOBALAMIN. [Suspect]
     Active Substance: METHYLCOBALAMIN
     Indication: LABYRINTHITIS
     Route: 048
     Dates: start: 20090119, end: 20090122
  26. CEFDITOREN PIVOXIL. [Suspect]
     Active Substance: CEFDITOREN PIVOXIL
     Route: 048
     Dates: start: 20090119, end: 20090121
  27. BETAMETHASONE. [Suspect]
     Active Substance: BETAMETHASONE
     Indication: DRUG ERUPTION
     Route: 048
     Dates: start: 20090117, end: 20090119
  28. PLASMA, FRESH FROZEN [Concomitant]
     Active Substance: HUMAN PLASMA
     Dosage: TOTAL 15 UNITS
     Route: 042
     Dates: start: 20090225, end: 20090306
  29. MAP (RED CELL CONCENTRATES MANNITOL ADENINE PHOSPHATE) [Concomitant]
     Dosage: TOTAL 8 UNITS
     Route: 042
     Dates: start: 20090307, end: 20090310

REACTIONS (11)
  - Transfusion-related acute lung injury [Fatal]
  - Disseminated intravascular coagulation [None]
  - Pelvic venous thrombosis [None]
  - Stevens-Johnson syndrome [None]
  - Liver disorder [None]
  - Splenic infarction [None]
  - Toxic epidermal necrolysis [Fatal]
  - Continuous haemodiafiltration [None]
  - Bacteraemia [None]
  - Mycoplasma test positive [None]
  - Endocarditis [None]

NARRATIVE: CASE EVENT DATE: 20090127
